FAERS Safety Report 20791671 (Version 1)
Quarter: 2022Q2

REPORT INFORMATION
  Report Type: Spontaneous
  Country: US (occurrence: US)
  Receive Date: 20220505
  Receipt Date: 20220505
  Transmission Date: 20220721
  Serious: No
  Sender: FDA-Public Use
  Company Number: US-SA-SAC20220502001520

PATIENT
  Age: 9 Year
  Sex: Male

DRUGS (2)
  1. DUPIXENT [Suspect]
     Active Substance: DUPILUMAB
     Indication: Dermatitis atopic
     Dosage: 300 MG, Q4W
     Route: 058
     Dates: start: 20201016
  2. COVID-19 VACCINE [Concomitant]
     Indication: Immunisation

REACTIONS (4)
  - Eczema eyelids [Not Recovered/Not Resolved]
  - Erythema [Not Recovered/Not Resolved]
  - Therapy interrupted [Unknown]
  - Therapeutic response shortened [Unknown]
